FAERS Safety Report 9453545 (Version 1)
Quarter: 2013Q3

REPORT INFORMATION
  Report Type: Spontaneous
  Country: US (occurrence: None)
  Receive Date: 20130809
  Receipt Date: 20130809
  Transmission Date: 20140515
  Serious: Yes (Hospitalization)
  Sender: FDA-Public Use
  Company Number: None

PATIENT
  Age: 61 Year
  Sex: Female

DRUGS (1)
  1. AFINITOR 5MG NOVARTIS [Suspect]
     Indication: BREAST CANCER
     Dosage: AFINITOR 10MG TAB  DAILY  PO
     Route: 048
     Dates: start: 20130508, end: 20130801

REACTIONS (4)
  - Abdominal pain upper [None]
  - Vomiting [None]
  - Chills [None]
  - Dehydration [None]
